FAERS Safety Report 9648025 (Version 1)
Quarter: 2013Q4

REPORT INFORMATION
  Report Type: Spontaneous
  Country: US (occurrence: US)
  Receive Date: 20131028
  Receipt Date: 20131028
  Transmission Date: 20140711
  Serious: No
  Sender: FDA-Public Use
  Company Number: US-PFIZER INC-2013305771

PATIENT
  Age: 71 Year
  Sex: Female

DRUGS (18)
  1. XELJANZ [Suspect]
     Indication: RHEUMATOID ARTHRITIS
     Dosage: 5 MG, 2X/DAY
     Route: 048
     Dates: start: 201309
  2. METHOTREXATE [Concomitant]
     Dosage: UNK
  3. FOLIC ACID [Concomitant]
     Dosage: UNK
  4. NAPROXEN [Concomitant]
     Dosage: UNK
  5. PREDNISONE [Concomitant]
     Dosage: UNK
  6. ATENOLOL [Concomitant]
     Dosage: UNK
  7. ZOCOR [Concomitant]
     Dosage: UNK
  8. SYNTHROID [Concomitant]
     Dosage: UNK
  9. NEXIUM [Concomitant]
     Dosage: UNK
  10. BONIVA [Concomitant]
     Dosage: UNK
  11. MYRBETRIQ [Concomitant]
     Dosage: UNK
  12. SINGULAIR [Concomitant]
     Dosage: UNK
  13. CLARITIN [Concomitant]
     Dosage: UNK
  14. ASPIRIN [Concomitant]
     Dosage: UNK
  15. PERSERVISION EYE VIT [Concomitant]
     Dosage: UNK
  16. RESTASIS [Concomitant]
     Dosage: UNK
  17. FLEXERIL [Concomitant]
     Dosage: UNK
  18. VOLTAREN [Concomitant]
     Dosage: UNK

REACTIONS (2)
  - Pain [Recovering/Resolving]
  - Back disorder [Recovering/Resolving]
